FAERS Safety Report 6968510-0 (Version None)
Quarter: 2010Q3

REPORT INFORMATION
  Report Type: 
  Country: None (occurrence: None)
  Receive Date: 20100907
  Receipt Date: 20100827
  Transmission Date: 20110219
  Serious: Yes (Hospitalization)
  Sender: FDA-Public Use
  Company Number: JP-JNJFOC-20100607658

PATIENT
  Sex: Female

DRUGS (5)
  1. CONCERTA [Suspect]
     Indication: ATTENTION DEFICIT/HYPERACTIVITY DISORDER
     Dosage: 27MG*30 TABLETS
     Route: 048
  2. LOXONIN [Concomitant]
     Indication: MUSCULOSKELETAL PAIN
     Route: 048
  3. LOXONIN [Concomitant]
     Indication: HEADACHE
     Route: 048
  4. INTAL [Concomitant]
     Indication: CONJUNCTIVITIS ALLERGIC
     Route: 065
  5. CALONAL [Concomitant]
     Indication: HEADACHE
     Route: 048

REACTIONS (8)
  - AGITATION [None]
  - BLOOD CREATINE PHOSPHOKINASE INCREASED [None]
  - COUGH [None]
  - INAPPROPRIATE SCHEDULE OF DRUG ADMINISTRATION [None]
  - IRRITABILITY [None]
  - LOGORRHOEA [None]
  - OVERDOSE [None]
  - WHITE BLOOD CELL COUNT INCREASED [None]
